FAERS Safety Report 4297407-2 (Version None)
Quarter: 2004Q1

REPORT INFORMATION
  Report Type: 
  Country: None (occurrence: None)
  Receive Date: 20040217
  Receipt Date: 20040217
  Transmission Date: 20041129
  Serious: Yes (Hospitalization)
  Sender: FDA-Public Use
  Company Number: None

PATIENT
  Sex: Female
  Weight: 71.6683 kg

DRUGS (4)
  1. VICODIN [Suspect]
     Indication: ARTHRALGIA
     Dosage: PO [PRIOR TO ADMISSION]
     Route: 048
  2. SKELAXIN [Suspect]
     Indication: ARTHRALGIA
     Dosage: PO [PRIOR TO ADMISSION]
     Route: 048
  3. TOPROL-XL [Concomitant]
  4. LIPITOR [Concomitant]

REACTIONS (4)
  - DIZZINESS [None]
  - NAUSEA [None]
  - RETCHING [None]
  - VOMITING [None]
